FAERS Safety Report 7274304-1 (Version None)
Quarter: 2011Q1

REPORT INFORMATION
  Report Type: 
  Country: None (occurrence: None)
  Receive Date: 20110201
  Receipt Date: 20110201
  Transmission Date: 20110831
  Serious: Yes (Life-Threatening, Hospitalization)
  Sender: FDA-Public Use
  Company Number: None

PATIENT
  Age: 48 Year
  Sex: Female
  Weight: 65 kg

DRUGS (1)
  1. SIMVASTATIN [Suspect]
     Dosage: 40MG PO QHS
     Route: 048

REACTIONS (2)
  - RENAL IMPAIRMENT [None]
  - RHABDOMYOLYSIS [None]
